FAERS Safety Report 24995852 (Version 1)
Quarter: 2025Q1

REPORT INFORMATION
  Report Type: Spontaneous
  Country: CN (occurrence: CN)
  Receive Date: 20250221
  Receipt Date: 20250221
  Transmission Date: 20250409
  Serious: Yes (Disabling)
  Sender: MERCK SHARP & DOHME LLC
  Company Number: CN-009507513-2255605

PATIENT
  Age: 60 Year
  Sex: Male
  Weight: 57 kg

DRUGS (6)
  1. KEYTRUDA [Suspect]
     Active Substance: PEMBROLIZUMAB
     Indication: Hypopharyngeal cancer
     Route: 041
     Dates: start: 20241219, end: 20241219
  2. PACLITAXEL [Suspect]
     Active Substance: PACLITAXEL
     Indication: Hypopharyngeal cancer
     Route: 041
     Dates: start: 20241220, end: 20241220
  3. CISPLATIN [Suspect]
     Active Substance: CISPLATIN
     Indication: Hypopharyngeal cancer
     Dosage: 40 MG, QD*3
     Route: 041
     Dates: start: 20241220, end: 20241222
  4. SODIUM CHLORIDE [Concomitant]
     Active Substance: SODIUM CHLORIDE
     Indication: Medication dilution
     Route: 041
     Dates: start: 20241219, end: 20241219
  5. SODIUM CHLORIDE [Concomitant]
     Active Substance: SODIUM CHLORIDE
     Indication: Medication dilution
     Route: 041
     Dates: start: 20241220, end: 20241220
  6. SODIUM CHLORIDE [Concomitant]
     Active Substance: SODIUM CHLORIDE
     Indication: Medication dilution
     Dosage: 500 ML, QD*3
     Route: 041
     Dates: start: 20241220, end: 20241222

REACTIONS (1)
  - Blood calcium decreased [Recovered/Resolved]

NARRATIVE: CASE EVENT DATE: 20241223
